FAERS Safety Report 5739666-2 (Version None)
Quarter: 2008Q2

REPORT INFORMATION
  Report Type: 
  Country: None (occurrence: None)
  Receive Date: 20080513
  Receipt Date: 20080414
  Transmission Date: 20081010
  Serious: Yes (Other)
  Sender: FDA-Public Use
  Company Number: GB-DEXPHARM-20080349

PATIENT
  Age: 60 Year
  Sex: Female

DRUGS (8)
  1. DICLOFLEX 50 MG (BATCH: 07H09) [Suspect]
     Indication: BILIARY COLIC
     Dosage: 50 MG MILLIGRAM(S) ORAL
     Route: 048
     Dates: start: 20080316, end: 20080316
  2. ASPIRIN [Concomitant]
  3. ATORVASTATIN CALCIUM [Concomitant]
  4. INSULIN [Concomitant]
  5. LATANOPROST [Concomitant]
  6. PAROXETINE HCL [Concomitant]
  7. RAMIPRIL [Concomitant]
  8. RANITIDINE [Concomitant]

REACTIONS (3)
  - PRURITUS [None]
  - REACTION TO COLOURING [None]
  - SYNCOPE VASOVAGAL [None]
